FAERS Safety Report 19752621 (Version 6)
Quarter: 2025Q2

REPORT INFORMATION
  Report Type: Report from Study
  Country: CA (occurrence: CA)
  Receive Date: 20210826
  Receipt Date: 20250430
  Transmission Date: 20250716
  Serious: Yes (Other)
  Sender: ASTELLAS
  Company Number: CA-ASTELLAS-2021US031774

PATIENT
  Age: 77 Year
  Sex: Male

DRUGS (19)
  1. ENZALUTAMIDE [Suspect]
     Active Substance: ENZALUTAMIDE
     Indication: Product used for unknown indication
     Dosage: 4 DF, ONCE DAILY (A DAY)
     Route: 065
  2. ENZALUTAMIDE [Suspect]
     Active Substance: ENZALUTAMIDE
     Dosage: 2 DF, ONCE DAILY (PER DAY)
     Route: 065
     Dates: start: 201905
  3. LEUPROLIDE ACETATE [Suspect]
     Active Substance: LEUPROLIDE ACETATE
     Indication: Prostate cancer
     Dosage: 45 MG, EVERY 6 MONTHS, SYRINGE A
     Route: 058
     Dates: start: 20210805
  4. LEUPROLIDE ACETATE [Suspect]
     Active Substance: LEUPROLIDE ACETATE
     Dosage: 45 MG, EVERY 6 MONTHS, SYRINGE A
     Route: 058
     Dates: start: 20220707
  5. LEUPROLIDE ACETATE [Suspect]
     Active Substance: LEUPROLIDE ACETATE
     Dosage: 45 MG, EVERY 6 MONTHS, SYRINGE A
     Route: 058
     Dates: start: 20230608
  6. LEUPROLIDE ACETATE [Suspect]
     Active Substance: LEUPROLIDE ACETATE
     Dosage: 45 MG, EVERY 6 MONTHS, POWDER FOR SUSPENSION, SUSTAINED RELEASE
     Route: 058
     Dates: start: 20231123
  7. LEUPROLIDE ACETATE [Suspect]
     Active Substance: LEUPROLIDE ACETATE
     Dosage: POWDER FOR SUSPENSION, SUSTAINED RELEASE
     Route: 058
     Dates: start: 20240509
  8. LEUPROLIDE ACETATE [Suspect]
     Active Substance: LEUPROLIDE ACETATE
     Dosage: 45 MG, EVERY 6 MONTHS, POWDER FOR SUSPENSION, SUSTAINED RELEASE
     Route: 058
     Dates: start: 20241030
  9. LEUPROLIDE ACETATE [Suspect]
     Active Substance: LEUPROLIDE ACETATE
     Dosage: 45 MG, EVERY 6 MONTHS, POWDER FOR SUSPENSION, SUSTAINED RELEASE
     Route: 058
  10. LEUPROLIDE ACETATE [Suspect]
     Active Substance: LEUPROLIDE ACETATE
     Dosage: 45 MG, EVERY 6 MONTHS, POWDER FOR SUSPENSION, SUSTAINED RELEASE
     Route: 058
  11. LEUPROLIDE ACETATE [Suspect]
     Active Substance: LEUPROLIDE ACETATE
     Dosage: 45 MG, EVERY 6 MONTHS, POWDER FOR SUSPENSION, SUSTAINED RELEASE
     Route: 058
  12. LEUPROLIDE ACETATE [Suspect]
     Active Substance: LEUPROLIDE ACETATE
     Dosage: 45 MG, EVERY 6 MONTHS, POWDER FOR SUSPENSION, SUSTAINED RELEASE
     Route: 058
  13. LEUPROLIDE ACETATE [Suspect]
     Active Substance: LEUPROLIDE ACETATE
     Dosage: 45 MG, EVERY 6 MONTHS,
     Route: 058
     Dates: start: 20161222
  14. CASODEX [Suspect]
     Active Substance: BICALUTAMIDE
     Indication: Prostatic specific antigen increased
     Route: 065
     Dates: start: 2018
  15. CASODEX [Suspect]
     Active Substance: BICALUTAMIDE
     Route: 065
     Dates: start: 2019
  16. CASODEX [Suspect]
     Active Substance: BICALUTAMIDE
     Route: 065
     Dates: start: 2018
  17. CASODEX [Suspect]
     Active Substance: BICALUTAMIDE
     Route: 065
     Dates: start: 2018
  18. CASODEX [Suspect]
     Active Substance: BICALUTAMIDE
     Route: 065
  19. CASODEX [Suspect]
     Active Substance: BICALUTAMIDE
     Route: 065

REACTIONS (32)
  - Hypertensive crisis [Unknown]
  - Cachexia [Unknown]
  - Haematological neoplasm [Unknown]
  - Lymphoma [Unknown]
  - Malignant neoplasm progression [Not Recovered/Not Resolved]
  - Dyspnoea [Unknown]
  - Anaemia [Unknown]
  - Decreased appetite [Unknown]
  - Diarrhoea [Unknown]
  - Dizziness [Unknown]
  - Fatigue [Unknown]
  - Hot flush [Unknown]
  - Hypoaesthesia [Unknown]
  - Injection site pain [Unknown]
  - Malaise [Unknown]
  - Abdominal pain upper [Not Recovered/Not Resolved]
  - Abdominal pain [Recovered/Resolved]
  - Asthenia [Unknown]
  - Injection site mass [Unknown]
  - Musculoskeletal stiffness [Unknown]
  - Weight decreased [Unknown]
  - Nausea [Unknown]
  - Prostatic specific antigen increased [Recovering/Resolving]
  - Peripheral swelling [Unknown]
  - Rash [Unknown]
  - Drug intolerance [Unknown]
  - Hypoaesthesia [Not Recovered/Not Resolved]
  - Musculoskeletal stiffness [Not Recovered/Not Resolved]
  - Sleep disorder due to a general medical condition [Not Recovered/Not Resolved]
  - Splenomegaly [Recovering/Resolving]
  - Rash [Recovered/Resolved]
  - Injection site pain [Recovered/Resolved]

NARRATIVE: CASE EVENT DATE: 20200101
